FAERS Safety Report 10682958 (Version 1)
Quarter: 2014Q4

REPORT INFORMATION
  Report Type: Spontaneous
  Country: US (occurrence: None)
  Receive Date: 20141229
  Receipt Date: 20141229
  Transmission Date: 20150529
  Serious: Yes (Hospitalization)
  Sender: FDA-Public Use
  Company Number: None

PATIENT
  Age: 66 Year
  Sex: Male
  Weight: 68 kg

DRUGS (3)
  1. CLOPIDOGREL [Suspect]
     Active Substance: CLOPIDOGREL BISULFATE
     Indication: PERIPHERAL VASCULAR DISORDER
     Dosage: 1 TAB
     Route: 048
  2. RIVAROXABAN 20 MG JANSSEN [Suspect]
     Active Substance: RIVAROXABAN
     Indication: ARTERIAL THROMBOSIS
     Dosage: 1 TAB
     Route: 048
  3. RIVAROXABAN 20 MG JANSSEN [Suspect]
     Active Substance: RIVAROXABAN
     Indication: PERIPHERAL VASCULAR DISORDER
     Dosage: 1 TAB
     Route: 048

REACTIONS (1)
  - Thrombosis [None]

NARRATIVE: CASE EVENT DATE: 20141014
